FAERS Safety Report 9874366 (Version 2)
Quarter: 2014Q1

REPORT INFORMATION
  Report Type: Other
  Country: US (occurrence: US)
  Receive Date: 20140206
  Receipt Date: 20140206
  Transmission Date: 20141002
  Serious: Yes (Disabling)
  Sender: FDA-Public Use
  Company Number: US-ACORDA-ACO_35021_2013

PATIENT
  Age: 25 Year
  Sex: Male
  Weight: 58.96 kg

DRUGS (6)
  1. AMPYRA [Suspect]
     Indication: GAIT DISTURBANCE
     Dosage: 10 MG, BID
     Route: 048
     Dates: start: 201011, end: 201201
  2. AMPYRA [Suspect]
     Dosage: 10 MG, Q 12 HRS
     Route: 048
     Dates: end: 20140112
  3. AMPYRA [Suspect]
     Dosage: 10 MG, ONCE
     Route: 048
     Dates: start: 20140124, end: 20140124
  4. AMPYRA [Suspect]
     Dosage: 10 MG, Q 12 HRS
     Route: 048
     Dates: start: 20140125
  5. TYSABRI [Concomitant]
     Indication: MULTIPLE SCLEROSIS
     Dosage: UNK,UNK
     Route: 065
  6. CLONAZEPAM QUALITEST [Concomitant]
     Indication: PRODUCT USED FOR UNKNOWN INDICATION
     Dosage: UNK,UNK
     Route: 065

REACTIONS (4)
  - Multiple sclerosis [Recovered/Resolved]
  - Therapeutic response unexpected [Unknown]
  - Multiple sclerosis relapse [Recovering/Resolving]
  - Fatigue [Recovered/Resolved]
